FAERS Safety Report 8827636 (Version 1)
Quarter: 2012Q4

REPORT INFORMATION
  Report Type: 
  Country: FR (occurrence: FR)
  Receive Date: 20121005
  Receipt Date: 20121005
  Transmission Date: 20130627
  Serious: Yes (Death)
  Sender: FDA-Public Use
  Company Number: PHHY2012FR086796

PATIENT
  Age: 13 Year
  Sex: Male

DRUGS (5)
  1. CICLOSPORIN [Suspect]
     Indication: GRAFT VERSUS HOST DISEASE
  2. MYCOPHENOLATE MOFETIL [Concomitant]
     Indication: GRAFT VERSUS HOST DISEASE
  3. ANTI-INTERLEUKIN 2 [Concomitant]
     Indication: GRAFT VERSUS HOST DISEASE
  4. STEROIDS NOS [Concomitant]
     Indication: GRAFT VERSUS HOST DISEASE
  5. TACROLIMUS [Concomitant]
     Indication: GRAFT VERSUS HOST DISEASE

REACTIONS (5)
  - Zygomycosis [Fatal]
  - Haemoptysis [Fatal]
  - Pyrexia [Fatal]
  - Cough [Fatal]
  - Neutropenia [Unknown]
